FAERS Safety Report 9349003 (Version 1)
Quarter: 2013Q2

REPORT INFORMATION
  Report Type: Spontaneous
  Country: AU (occurrence: AU)
  Receive Date: 20130614
  Receipt Date: 20130614
  Transmission Date: 20140414
  Serious: Yes (Death)
  Sender: FDA-Public Use
  Company Number: AU-ROXANE LABORATORIES, INC.-2013-RO-00948RO

PATIENT
  Age: 40 Year
  Sex: Female

DRUGS (2)
  1. NAPROXEN [Suspect]
  2. FLUOXETINE [Suspect]

REACTIONS (2)
  - Carbon monoxide poisoning [Fatal]
  - Intentional self-injury [Fatal]
